FAERS Safety Report 4369740-7 (Version None)
Quarter: 2004Q2

REPORT INFORMATION
  Report Type: 
  Country: None (occurrence: None)
  Receive Date: 20040525
  Receipt Date: 20040517
  Transmission Date: 20050107
  Serious: Yes (Death)
  Sender: FDA-Public Use
  Company Number: US-JNJFOC-20040102672

PATIENT
  Age: 64 Year
  Sex: Female

DRUGS (1)
  1. DITROPAN XL [Suspect]
     Indication: URINARY INCONTINENCE
     Dosage: 5 MG
     Dates: start: 20010101

REACTIONS (1)
  - BREAST CANCER METASTATIC [None]
